FAERS Safety Report 15930386 (Version 1)
Quarter: 2019Q1

REPORT INFORMATION
  Report Type: Spontaneous
  Country: FR (occurrence: FR)
  Receive Date: 20190207
  Receipt Date: 20190207
  Transmission Date: 20190417
  Serious: Yes (Other)
  Sender: FDA-Public Use
  Company Number: FR-SUN PHARMACEUTICAL INDUSTRIES LTD-2019RR-198416

PATIENT
  Age: 67 Year
  Sex: Male
  Weight: 53 kg

DRUGS (3)
  1. COUMADINE 2 MG, COMPRIME SECABLE [Suspect]
     Active Substance: WARFARIN SODIUM
     Indication: ISCHAEMIC CARDIOMYOPATHY
     Dosage: 4 MILLIGRAM, DAILY
     Route: 048
     Dates: end: 20181220
  2. CLOPIDOGREL [Suspect]
     Active Substance: CLOPIDOGREL BISULFATE
     Indication: PRODUCT USED FOR UNKNOWN INDICATION
     Dosage: 75 MILLIGRAM
     Route: 048
  3. AMIODARONE [Interacting]
     Active Substance: AMIODARONE
     Indication: PRODUCT USED FOR UNKNOWN INDICATION
     Dosage: 200 MILLIGRAM, DAILY
     Route: 048

REACTIONS (1)
  - International normalised ratio increased [Recovered/Resolved]

NARRATIVE: CASE EVENT DATE: 20181220
